FAERS Safety Report 19336579 (Version 1)
Quarter: 2021Q2

REPORT INFORMATION
  Report Type: Spontaneous
  Country: US (occurrence: US)
  Receive Date: 20210530
  Receipt Date: 20210530
  Transmission Date: 20210717
  Serious: Yes (Death, Other)
  Sender: FDA-Public Use
  Company Number: US-PURDUE-USA-2020-0208388

PATIENT
  Sex: Male

DRUGS (2)
  1. HEROIN [Suspect]
     Active Substance: DIAMORPHINE
     Indication: PRODUCT USED FOR UNKNOWN INDICATION
     Dosage: UNK
     Route: 065
  2. OXYCONTIN [Suspect]
     Active Substance: OXYCODONE HYDROCHLORIDE
     Indication: BACK PAIN
     Dosage: UNK
     Route: 048

REACTIONS (9)
  - Emotional distress [Unknown]
  - Drug withdrawal syndrome [Unknown]
  - Pain [Unknown]
  - Hypersomnia [Unknown]
  - Migraine [Unknown]
  - Drug dependence [Unknown]
  - Mood swings [Unknown]
  - Overdose [Fatal]
  - Vomiting [Unknown]

NARRATIVE: CASE EVENT DATE: 201402
